FAERS Safety Report 6032358-4 (Version None)
Quarter: 2008Q4

REPORT INFORMATION
  Report Type: 
  Country: None (occurrence: None)
  Receive Date: 20081222
  Receipt Date: 20081105
  Transmission Date: 20090506
  Serious: No
  Sender: FDA-Public Use
  Company Number: US-WYE-H06703308

PATIENT
  Age: 52 Year
  Sex: Female
  Weight: 65.83 kg

DRUGS (7)
  1. PRISTIQ [Suspect]
     Indication: ANXIETY
     Dosage: 50 MG 1X PER 1 DAY, ORAL ; 50 MG 1X PER 3 DAY, ORAL ; 50 MG 1X PER 2 DAY, ORAL
     Route: 048
     Dates: start: 20081001, end: 20080101
  2. PRISTIQ [Suspect]
     Indication: DEPRESSION
     Dosage: 50 MG 1X PER 1 DAY, ORAL ; 50 MG 1X PER 3 DAY, ORAL ; 50 MG 1X PER 2 DAY, ORAL
     Route: 048
     Dates: start: 20081001, end: 20080101
  3. PRISTIQ [Suspect]
     Indication: ANXIETY
     Dosage: 50 MG 1X PER 1 DAY, ORAL ; 50 MG 1X PER 3 DAY, ORAL ; 50 MG 1X PER 2 DAY, ORAL
     Route: 048
     Dates: start: 20080601, end: 20081001
  4. PRISTIQ [Suspect]
     Indication: DEPRESSION
     Dosage: 50 MG 1X PER 1 DAY, ORAL ; 50 MG 1X PER 3 DAY, ORAL ; 50 MG 1X PER 2 DAY, ORAL
     Route: 048
     Dates: start: 20080601, end: 20081001
  5. PRISTIQ [Suspect]
     Indication: ANXIETY
     Dosage: 50 MG 1X PER 1 DAY, ORAL ; 50 MG 1X PER 3 DAY, ORAL ; 50 MG 1X PER 2 DAY, ORAL
     Route: 048
     Dates: start: 20080101
  6. PRISTIQ [Suspect]
     Indication: DEPRESSION
     Dosage: 50 MG 1X PER 1 DAY, ORAL ; 50 MG 1X PER 3 DAY, ORAL ; 50 MG 1X PER 2 DAY, ORAL
     Route: 048
     Dates: start: 20080101
  7. LEVAQUIN [Concomitant]

REACTIONS (3)
  - DIZZINESS [None]
  - DRUG WITHDRAWAL SYNDROME [None]
  - TREMOR [None]
